FAERS Safety Report 7190634 (Version 3)
Quarter: 2014Q2

REPORT INFORMATION
  Report Type: Report from Study
  Country: US (occurrence: US)
  Receive Date: 20091126
  Receipt Date: 20140508
  Transmission Date: 20141212
  Serious: Yes (Hospitalization)
  Sender: FDA-Public Use
  Company Number: US-BIOGENIDEC-2009BI037728

PATIENT
  Age: 22 Year
  Sex: Female

DRUGS (3)
  1. TYSABRI [Suspect]
     Indication: MULTIPLE SCLEROSIS
     Route: 042
     Dates: start: 20080401, end: 20100624
  2. NEURONTIN [Concomitant]
     Route: 048
  3. PREDNISONE [Concomitant]

REACTIONS (2)
  - Arthropod bite [Recovered/Resolved]
  - Urinary tract infection [Recovered/Resolved]
